FAERS Safety Report 8840430 (Version 1)
Quarter: 2012Q4

REPORT INFORMATION
  Report Type: 
  Country: NL (occurrence: NL)
  Receive Date: 20121015
  Receipt Date: 20121015
  Transmission Date: 20130627
  Serious: Yes (Hospitalization)
  Sender: FDA-Public Use
  Company Number: NL-PFIZER INC-2012250223

PATIENT
  Age: 34 Year
  Sex: Female
  Weight: 65 kg

DRUGS (11)
  1. GENOTROPIN [Suspect]
     Indication: HYPOPITUITARISM
     Dosage: 0.8 mg, 1x/day, 7injections/week
     Route: 058
     Dates: start: 20000515
  2. CORTISONE ACETATE [Concomitant]
     Indication: BLOOD CORTICOTROPHIN DECREASED
     Dosage: UNK
     Dates: start: 19860315
  3. ESTROGEN NOS [Concomitant]
     Indication: BLOOD LUTEINISING HORMONE DECREASED
     Dosage: UNK
     Dates: start: 19860315
  4. ESTROGEN NOS [Concomitant]
     Indication: BLOOD FOLLICLE STIMULATING HORMONE DECREASED
  5. ESTROGEN NOS [Concomitant]
     Indication: HYPOGONADISM FEMALE
  6. PROGESTERONE [Concomitant]
     Indication: BLOOD LUTEINISING HORMONE DECREASED
     Dosage: UNK
     Dates: start: 19860315
  7. PROGESTERONE [Concomitant]
     Indication: BLOOD FOLLICLE STIMULATING HORMONE DECREASED
  8. PROGESTERONE [Concomitant]
     Indication: HYPOGONADISM FEMALE
  9. TRINOVUM [Concomitant]
     Indication: CONTRACEPTION
     Dosage: UNK
     Dates: start: 19880610
  10. DESMOPRESSIN [Concomitant]
     Indication: BLOOD ANTIDIURETIC HORMONE DECREASED
     Dosage: UNK
     Dates: start: 20000415
  11. LEVOTHYROXINE [Concomitant]
     Indication: BLOOD THYROID STIMULATING HORMONE DECREASED
     Dosage: UNK
     Dates: start: 19860315

REACTIONS (1)
  - Eye disorder [Unknown]
